FAERS Safety Report 5078716-6 (Version None)
Quarter: 2006Q3

REPORT INFORMATION
  Report Type: 
  Country: None (occurrence: None)
  Receive Date: 20060809
  Receipt Date: 20060809
  Transmission Date: 20061208
  Serious: Yes (Other)
  Sender: FDA-Public Use
  Company Number: None

PATIENT
  Sex: Male
  Weight: 98.4306 kg

DRUGS (4)
  1. HALDOL [Suspect]
     Indication: AGITATION
     Dosage: 5 MG PO Q4 HOURS PRN FOR AGITATION [RECEIVED IN 1ST 24 HOURS OF HOSPITALIZATION THEN STOPPED]
     Route: 048
  2. HALDOL [Suspect]
     Indication: BIPOLAR DISORDER
     Dosage: 5 MG PO Q4 HOURS PRN FOR AGITATION [RECEIVED IN 1ST 24 HOURS OF HOSPITALIZATION THEN STOPPED]
     Route: 048
  3. HALDOL [Suspect]
     Indication: MANIA
     Dosage: 5 MG PO Q4 HOURS PRN FOR AGITATION [RECEIVED IN 1ST 24 HOURS OF HOSPITALIZATION THEN STOPPED]
     Route: 048
  4. DIPHENHYRADMINE [Concomitant]

REACTIONS (2)
  - DYSTONIA [None]
  - JAW DISORDER [None]
